FAERS Safety Report 9715821 (Version 1)
Quarter: 2013Q4

REPORT INFORMATION
  Report Type: Report from Study
  Country: ES (occurrence: ES)
  Receive Date: 20131127
  Receipt Date: 20131127
  Transmission Date: 20140711
  Serious: Yes (Hospitalization, Other)
  Sender: FDA-Public Use
  Company Number: ES-PFIZER INC-2013333568

PATIENT
  Age: 78 Year
  Sex: Female

DRUGS (15)
  1. ALDACTONE [Suspect]
     Indication: CARDIAC FAILURE
     Dosage: 25 MG, 1X/DAY
     Route: 048
     Dates: start: 200708, end: 20130224
  2. IBUPROFEN [Interacting]
     Indication: OSTEITIS
     Dosage: 600 MG, 3X/DAY
     Route: 048
     Dates: start: 20130215, end: 20130224
  3. VALSARTAN [Interacting]
     Indication: HYPERTENSION
     Dosage: 80 MG, 1X/DAY
     Route: 048
     Dates: start: 200708, end: 20130224
  4. CLINDAMYCIN HCL [Interacting]
     Indication: OSTEITIS
     Dosage: 1.2 G, 1X/DAY
     Route: 048
     Dates: start: 20130215, end: 20130224
  5. FUROSEMIDE [Interacting]
     Indication: CARDIAC FAILURE
     Dosage: 40 MG, 3X/DAY
     Route: 048
     Dates: start: 200708, end: 20130224
  6. CIPROFLOXACIN [Interacting]
     Indication: OSTEITIS
     Dosage: 1 G, 1X/DAY
     Route: 048
     Dates: start: 20130215, end: 20130224
  7. OPTOVIT-E [Concomitant]
  8. ESCITALOPRAM [Concomitant]
  9. ACFOL [Concomitant]
  10. INSULATARD [Concomitant]
  11. FOSTER [Concomitant]
  12. GABAPENTIN [Concomitant]
  13. METFORMIN [Concomitant]
  14. OMEPRAZOLE [Concomitant]
  15. SIMVASTATIN [Concomitant]

REACTIONS (5)
  - Drug interaction [Recovered/Resolved]
  - Renal failure acute [Recovered/Resolved]
  - Hyperkalaemia [Recovered/Resolved]
  - Depressed level of consciousness [Unknown]
  - Decreased appetite [Unknown]
